FAERS Safety Report 11233960 (Version 2)
Quarter: 2016Q4

REPORT INFORMATION
  Report Type: Other
  Country: ES (occurrence: ES)
  Receive Date: 20150702
  Receipt Date: 20161223
  Transmission Date: 20170206
  Serious: Yes (Other)
  Sender: FDA-Public Use
  Company Number: ES-LUPIN PHARMACEUTICALS INC.-2015-01915

PATIENT
  Age: 54 Year
  Sex: Male

DRUGS (3)
  1. MEROPENEM. [Concomitant]
     Active Substance: MEROPENEM
     Indication: INFECTION
     Route: 065
  2. VANCOMYCIN [Suspect]
     Active Substance: VANCOMYCIN
     Indication: INFECTION
     Route: 065
  3. ALBUMIN [Concomitant]
     Active Substance: ALBUMIN HUMAN
     Indication: INFECTION
     Route: 065

REACTIONS (1)
  - Linear IgA disease [Recovering/Resolving]
